FAERS Safety Report 8016088-5 (Version None)
Quarter: 2011Q4

REPORT INFORMATION
  Report Type: 
  Country: None (occurrence: None)
  Receive Date: 20111228
  Receipt Date: 20111228
  Transmission Date: 20120403
  Serious: Yes (Life-Threatening, Disabling, Other)
  Sender: FDA-Public Use
  Company Number: None

PATIENT
  Age: 79 Year
  Sex: Male
  Weight: 95.2554 kg

DRUGS (1)
  1. BENZTROPINE MESYLATE [Suspect]
     Indication: PARALYSIS
     Dosage: 1 TABLET TWICE A DAY BY MOUTH
     Route: 048
     Dates: start: 20100101

REACTIONS (3)
  - PRODUCT CONTAMINATION [None]
  - FOOD INTERACTION [None]
  - PRODUCT COUNTERFEIT [None]
